FAERS Safety Report 19043596 (Version 1)
Quarter: 2021Q1

REPORT INFORMATION
  Report Type: Spontaneous
  Country: US (occurrence: US)
  Receive Date: 20210323
  Receipt Date: 20210323
  Transmission Date: 20210420
  Serious: Yes (Other)
  Sender: FDA-Public Use
  Company Number: None

PATIENT
  Age: 77 Year
  Sex: Female
  Weight: 119.25 kg

DRUGS (4)
  1. VITAMINS D [Concomitant]
  2. CENTRUM SILVER [Concomitant]
     Active Substance: MINERALS\VITAMINS
  3. CBD OIL [Concomitant]
     Active Substance: CANNABIDIOL\HERBALS
  4. BAMLANIVIMAB. [Suspect]
     Active Substance: BAMLANIVIMAB

REACTIONS (2)
  - Pruritus [None]
  - Urticaria [None]

NARRATIVE: CASE EVENT DATE: 20210128
